FAERS Safety Report 7589427-7 (Version None)
Quarter: 2011Q3

REPORT INFORMATION
  Report Type: 
  Country: None (occurrence: None)
  Receive Date: 20110705
  Receipt Date: 20110623
  Transmission Date: 20111222
  Serious: Yes (Other)
  Sender: FDA-Public Use
  Company Number: JP-JNJFOC-20110607950

PATIENT
  Age: 8 Year
  Sex: Male

DRUGS (1)
  1. RISPERDAL [Suspect]
     Indication: AGITATION
     Route: 048
     Dates: start: 20100101, end: 20100601

REACTIONS (2)
  - CHEST PAIN [None]
  - CARDIAC DISORDER [None]
